FAERS Safety Report 5989557-7 (Version None)
Quarter: 2008Q4

REPORT INFORMATION
  Report Type: 
  Country: None (occurrence: None)
  Receive Date: 20081208
  Receipt Date: 20081125
  Transmission Date: 20090506
  Serious: Yes (Death, Hospitalization)
  Sender: FDA-Public Use
  Company Number: MC200800549

PATIENT
  Age: 60 Year
  Sex: Male

DRUGS (7)
  1. ANGIOMAX [Suspect]
     Dosage: MG, INTRAVENOUS
     Route: 042
     Dates: start: 20081018
  2. PLAVIX [Suspect]
     Dosage: 75 MG, ORAL
     Route: 048
     Dates: start: 20081018, end: 20081019
  3. INTEGRILIN [Suspect]
     Dosage: INTRAVENOUS
     Route: 042
  4. ZOCOR [Concomitant]
  5. TOPROL-XL [Concomitant]
  6. LISINOPRIL [Concomitant]
  7. ASPIRIN [Concomitant]

REACTIONS (8)
  - ACUTE MYOCARDIAL INFARCTION [None]
  - CONFUSIONAL STATE [None]
  - CORONARY ARTERY THROMBOSIS [None]
  - DISSEMINATED INTRAVASCULAR COAGULATION [None]
  - ELECTROMECHANICAL DISSOCIATION [None]
  - HAEMATOMA [None]
  - HYPOTENSION [None]
  - THROMBOCYTOPENIA [None]
